FAERS Safety Report 9316271 (Version 1)
Quarter: 2013Q1

REPORT INFORMATION
  Report Type: Spontaneous
  Country: DK (occurrence: None)
  Receive Date: 20130122
  Receipt Date: 20130122
  Transmission Date: 20140127
  Serious: Yes (Other)
  Sender: FDA-Public Use
  Company Number: ENTC2013-0004

PATIENT
  Sex: Male

DRUGS (3)
  1. STALEVO (LEVODOPA, CARBIDOPA, ENTACAPONE) [Suspect]
     Indication: PARKINSONISM
     Dosage: 3/4 YEAR
     Route: 048
  2. ZIFROL [Concomitant]
  3. SINEMET [Concomitant]

REACTIONS (4)
  - Alcohol interaction [None]
  - Loss of consciousness [None]
  - Somnambulism [None]
  - Hypothermia [None]
